FAERS Safety Report 5227817-8 (Version None)
Quarter: 2007Q1

REPORT INFORMATION
  Report Type: 
  Country: None (occurrence: None)
  Receive Date: 20070202
  Receipt Date: 20070122
  Transmission Date: 20070707
  Serious: Yes (Other)
  Sender: FDA-Public Use
  Company Number: US-PFIZER INC-2007006386

PATIENT
  Sex: Female
  Weight: 89.8 kg

DRUGS (5)
  1. DILANTIN [Suspect]
     Indication: CONVULSION
  2. VITAMINS [Concomitant]
  3. VITAMIN D [Concomitant]
  4. IRON [Concomitant]
  5. TRILEPTAL [Concomitant]

REACTIONS (3)
  - BONE DISORDER [None]
  - GAIT DISTURBANCE [None]
  - GINGIVAL BLEEDING [None]
